FAERS Safety Report 8200472-0 (Version None)
Quarter: 2012Q1

REPORT INFORMATION
  Report Type: 
  Country: None (occurrence: None)
  Receive Date: 20120312
  Receipt Date: 20120302
  Transmission Date: 20120608
  Serious: Yes (Other)
  Sender: FDA-Public Use
  Company Number: JP-BAYER-2012-022055

PATIENT
  Age: 27 Year
  Sex: Female
  Weight: 67 kg

DRUGS (1)
  1. YAZ [Suspect]
     Indication: DYSMENORRHOEA
     Dosage: DAILY DOSE 1 DF
     Route: 048
     Dates: start: 20110701, end: 20120201

REACTIONS (3)
  - HAEMATOCHEZIA [None]
  - BACK PAIN [None]
  - COLITIS ISCHAEMIC [None]
